FAERS Safety Report 11755357 (Version 1)
Quarter: 2015Q4

REPORT INFORMATION
  Report Type: Spontaneous
  Country: ES (occurrence: ES)
  Receive Date: 20151119
  Receipt Date: 20151119
  Transmission Date: 20160304
  Serious: Yes (Life-Threatening, Hospitalization)
  Sender: FDA-Public Use
  Company Number: PHHY2015ES151354

PATIENT
  Age: 15 Year
  Sex: Male

DRUGS (1)
  1. REVOLADE [Suspect]
     Active Substance: ELTROMBOPAG
     Indication: IMMUNE THROMBOCYTOPENIC PURPURA
     Dosage: 75 MG, QD
     Route: 048
     Dates: start: 20150101, end: 20151008

REACTIONS (1)
  - Cerebral venous thrombosis [Recovering/Resolving]

NARRATIVE: CASE EVENT DATE: 20150906
